FAERS Safety Report 23447284 (Version 1)
Quarter: 2024Q1

REPORT INFORMATION
  Report Type: Spontaneous
  Country: US (occurrence: US)
  Receive Date: 20240126
  Receipt Date: 20240126
  Transmission Date: 20240410
  Serious: No
  Sender: FDA-Public Use
  Company Number: US-FreseniusKabi-FK202400728

PATIENT

DRUGS (1)
  1. DIPRIVAN [Suspect]
     Active Substance: ISOPROPYL ALCOHOL\PROPOFOL
     Indication: Product used for unknown indication
     Dosage: FORM: EMULSION FOR INJECTION/INFUSION?DIPRIVAN INJ 10ML SDV
     Dates: start: 20240108, end: 20240108

REACTIONS (1)
  - Skin laceration [Recovered/Resolved]
